FAERS Safety Report 5333613-3 (Version None)
Quarter: 2007Q2

REPORT INFORMATION
  Report Type: 
  Country: None (occurrence: None)
  Receive Date: 20070524
  Receipt Date: 20070518
  Transmission Date: 20071010
  Serious: Yes (Life-Threatening, Hospitalization, Other)
  Sender: FDA-Public Use
  Company Number: US-MERCK-0705USA03611

PATIENT
  Sex: Female

DRUGS (10)
  1. SINGULAIR [Suspect]
     Route: 048
  2. LASIX [Concomitant]
     Route: 065
  3. SOLU-MEDROL [Concomitant]
     Route: 065
  4. LOPRESSOR [Concomitant]
     Route: 065
  5. PROTONIX [Concomitant]
     Route: 065
  6. MORPHINE [Concomitant]
     Route: 065
  7. FLOVENT [Concomitant]
     Route: 065
  8. ASPIRIN [Concomitant]
     Route: 065
  9. XANAX [Concomitant]
     Route: 065
  10. TYLENOL [Concomitant]
     Route: 065

REACTIONS (5)
  - ATRIAL FIBRILLATION [None]
  - DYSPNOEA [None]
  - ENDOCRINE DISORDER [None]
  - EXTRASYSTOLES [None]
  - PALPITATIONS [None]
